FAERS Safety Report 10076273 (Version 2)
Quarter: 2014Q4

REPORT INFORMATION
  Report Type: Spontaneous
  Country: US (occurrence: None)
  Receive Date: 20140410
  Receipt Date: 20141120
  Transmission Date: 20150528
  Serious: Yes (Life-Threatening)
  Sender: FDA-Public Use
  Company Number: 1713747-2014-99944

PATIENT
  Age: 67 Year
  Sex: Male
  Weight: 96.3 kg

DRUGS (4)
  1. LIBERTY CYCLER [Concomitant]
     Active Substance: DEVICE
  2. LIBERTY TUBING [Concomitant]
  3. DELFLEX [Suspect]
     Active Substance: CALCIUM CHLORIDE\DEXTROSE MONOHYDRATE\MAGNESIUM CHLORIDE\SODIUM CHLORIDE\SODIUM LACTATE
     Indication: CHRONIC KIDNEY DISEASE
     Dosage: PERITONEAL DIALYSIS
     Dates: start: 20140309
  4. DELFLEX [Suspect]
     Active Substance: CALCIUM CHLORIDE\DEXTROSE MONOHYDRATE\MAGNESIUM CHLORIDE\SODIUM CHLORIDE\SODIUM LACTATE
     Dosage: PERITONEAL DIALYSIS
     Dates: start: 20140309

REACTIONS (4)
  - Abdominal distension [None]
  - Peritonitis [None]
  - Abdominal discomfort [None]
  - Infection [None]

NARRATIVE: CASE EVENT DATE: 20140309
